FAERS Safety Report 4902218-8 (Version None)
Quarter: 2006Q1

REPORT INFORMATION
  Report Type: 
  Country: None (occurrence: None)
  Receive Date: 20060207
  Receipt Date: 20060130
  Transmission Date: 20060701
  Serious: Yes (Hospitalization)
  Sender: FDA-Public Use
  Company Number: US-MERCK-0601USA03643

PATIENT
  Sex: Male
  Weight: 81 kg

DRUGS (2)
  1. VIOXX [Suspect]
     Indication: JOINT INJURY
     Route: 048
     Dates: start: 20020101, end: 20020601
  2. ADVIL [Concomitant]
     Route: 065

REACTIONS (2)
  - ARTHROPATHY [None]
  - CARDIAC DISORDER [None]
